FAERS Safety Report 17273609 (Version 1)
Quarter: 2020Q1

REPORT INFORMATION
  Report Type: Spontaneous
  Country: US (occurrence: US)
  Receive Date: 20200115
  Receipt Date: 20200115
  Transmission Date: 20200409
  Serious: Yes (Other)
  Sender: FDA-Public Use
  Company Number: US-PFIZER INC-2020019185

PATIENT
  Sex: Female

DRUGS (1)
  1. IBRANCE [Suspect]
     Active Substance: PALBOCICLIB
     Dosage: UNK
     Dates: end: 201910

REACTIONS (5)
  - Full blood count decreased [Unknown]
  - Hip fracture [Unknown]
  - Bedridden [Unknown]
  - Decreased appetite [Unknown]
  - Malaise [Unknown]
